FAERS Safety Report 12543303 (Version 2)
Quarter: 2016Q3

REPORT INFORMATION
  Report Type: Other
  Country: US (occurrence: US)
  Receive Date: 20160711
  Receipt Date: 20160805
  Transmission Date: 20161109
  Serious: Yes (Other)
  Sender: FDA-Public Use
  Company Number: US-SHIRE-US201608272

PATIENT
  Age: 58 Year
  Sex: Female

DRUGS (1)
  1. NATPARA (PARATHYROID HORMONE) [Suspect]
     Active Substance: PARATHYROID HORMONE
     Indication: HYPOPARATHYROIDISM
     Dosage: 50 ?G, 1X/DAY:QD
     Route: 058
     Dates: start: 20160421

REACTIONS (8)
  - Fatigue [Unknown]
  - Vomiting [Not Recovered/Not Resolved]
  - Nonspecific reaction [Unknown]
  - Haematemesis [Unknown]
  - Rash generalised [Not Recovered/Not Resolved]
  - Oropharyngeal pain [Unknown]
  - Malaise [Unknown]
  - Nausea [Not Recovered/Not Resolved]

NARRATIVE: CASE EVENT DATE: 201606
